FAERS Safety Report 20862332 (Version 1)
Quarter: 2022Q2

REPORT INFORMATION
  Report Type: Spontaneous
  Country: US (occurrence: None)
  Receive Date: 20220523
  Receipt Date: 20220523
  Transmission Date: 20220721
  Serious: Yes (Hospitalization)
  Sender: FDA-Public Use
  Company Number: None

PATIENT
  Age: 44 Year
  Sex: Male

DRUGS (2)
  1. SPRYCEL [Suspect]
     Active Substance: DASATINIB
     Indication: Acute leukaemia
     Dosage: FREQUENCY : DAILY;?
     Route: 048
     Dates: start: 20211216
  2. SPRYCEL [Suspect]
     Active Substance: DASATINIB
     Dosage: FREQUENCY : DAILY;?
     Route: 048

REACTIONS (2)
  - Therapy interrupted [None]
  - Bone marrow transplant [None]

NARRATIVE: CASE EVENT DATE: 20220521
